FAERS Safety Report 6239579-6 (Version None)
Quarter: 2009Q2

REPORT INFORMATION
  Report Type: 
  Country: None (occurrence: None)
  Receive Date: 20090619
  Receipt Date: 20090608
  Transmission Date: 20091009
  Serious: Yes (Disabling, Other)
  Sender: FDA-Public Use
  Company Number: 2009AP002309

PATIENT
  Sex: Male

DRUGS (11)
  1. RISPERIDONE [Suspect]
  2. DIAZEPAM [Suspect]
  3. CLOPIXOL (ZUCLOPENTHIXOL) [Suspect]
  4. HALOPERIDOL [Suspect]
  5. ANTIPSYCHOTICS (ANTIPSYCHOTICS) [Concomitant]
  6. ACETAMINOPHEN [Concomitant]
  7. CLOZAPINE [Concomitant]
  8. FLUOXETINE HCL [Concomitant]
  9. PSEUDOEPHEDRINE HCL [Concomitant]
  10. SULPIRIDE (SULPIRIDE) [Concomitant]
  11. PROCYCLIDINE HYDROCHLORIDE 2MG TAB [Concomitant]

REACTIONS (24)
  - ABASIA [None]
  - APATHY [None]
  - CONDITION AGGRAVATED [None]
  - DECREASED INTEREST [None]
  - DELUSION [None]
  - DISTURBANCE IN ATTENTION [None]
  - DRUG PRESCRIBING ERROR [None]
  - DRUG TOXICITY [None]
  - DRUG WITHDRAWAL SYNDROME [None]
  - DYSARTHRIA [None]
  - DYSSTASIA [None]
  - GENERAL PHYSICAL HEALTH DETERIORATION [None]
  - HALLUCINATION [None]
  - HYPERSOMNIA [None]
  - INDIFFERENCE [None]
  - INSOMNIA [None]
  - LIP DISORDER [None]
  - NAUSEA [None]
  - NEUROLEPTIC MALIGNANT SYNDROME [None]
  - PAROSMIA [None]
  - PSYCHOTIC DISORDER [None]
  - QUALITY OF LIFE DECREASED [None]
  - SALIVARY HYPERSECRETION [None]
  - VOMITING [None]
